FAERS Safety Report 7866766-3 (Version None)
Quarter: 2011Q4

REPORT INFORMATION
  Report Type: 
  Country: None (occurrence: None)
  Receive Date: 20111028
  Receipt Date: 20110815
  Transmission Date: 20120403
  Serious: No
  Sender: FDA-Public Use
  Company Number: US-GLAXOSMITHKLINE-A0941103A

PATIENT
  Age: 73 Year
  Sex: Female

DRUGS (5)
  1. ADVAIR DISKUS 100/50 [Suspect]
     Indication: BRONCHITIS
     Dosage: 1PUFF TWICE PER DAY
     Route: 055
     Dates: start: 20110101
  2. CLARITIN [Concomitant]
  3. FLONASE [Concomitant]
  4. TRAZODONE HYDROCHLORIDE [Concomitant]
  5. NEXIUM [Concomitant]

REACTIONS (1)
  - HEADACHE [None]
